FAERS Safety Report 7029406-1 (Version None)
Quarter: 2010Q4

REPORT INFORMATION
  Report Type: 
  Country: None (occurrence: None)
  Receive Date: 20101005
  Receipt Date: 20100929
  Transmission Date: 20110411
  Serious: Yes (Other)
  Sender: FDA-Public Use
  Company Number: PHHY2010SE64518

PATIENT
  Sex: Female

DRUGS (7)
  1. ACLASTA [Suspect]
     Indication: OSTEOPOROSIS
     Dosage: UNK
     Route: 042
     Dates: start: 20080522
  2. ATROVENT [Concomitant]
  3. BETAPRED [Concomitant]
  4. ACETYLCYSTEINE [Concomitant]
     Dosage: UNK
  5. BEHEPAN [Concomitant]
     Dosage: UNK
  6. ERGOCALCIFEROL [Concomitant]
  7. SEREVENT [Concomitant]

REACTIONS (2)
  - LOOSE TOOTH [None]
  - OSTEOMYELITIS [None]
